FAERS Safety Report 5710148-7 (Version None)
Quarter: 2008Q2

REPORT INFORMATION
  Report Type: 
  Country: None (occurrence: None)
  Receive Date: 20080418
  Receipt Date: 20080409
  Transmission Date: 20081010
  Serious: Yes (Other)
  Sender: FDA-Public Use
  Company Number: US-PFIZER INC-2007070343

PATIENT
  Sex: Female
  Weight: 67.7 kg

DRUGS (18)
  1. CHANTIX [Suspect]
     Indication: SMOKING CESSATION THERAPY
  2. ALL OTHER THERAPEUTIC PRODUCTS [Suspect]
     Indication: BREAST CANCER
  3. HERBAL NOS/MINERALS NOS/VITAMINS NOS [Concomitant]
     Indication: WEIGHT INCREASED
  4. SIMVASTATIN [Concomitant]
     Dosage: DAILY DOSE:40MG
  5. EFFEXOR [Concomitant]
  6. TRAZODONE HCL [Concomitant]
  7. DITROPAN [Concomitant]
  8. NEXIUM [Concomitant]
  9. HYDROCHLOROTHIAZIDE [Concomitant]
  10. MIRAPEX [Concomitant]
  11. XANAX [Concomitant]
  12. CARTIA XT [Concomitant]
  13. NITROGLYCERIN [Concomitant]
  14. HYDROCODONE BITARTRATE [Concomitant]
  15. VICODIN [Concomitant]
  16. ZETIA [Concomitant]
  17. TRILEPTAL [Concomitant]
  18. ANTINEOPLASTIC AGENTS [Concomitant]
     Indication: NEOPLASM MALIGNANT

REACTIONS (17)
  - ANGER [None]
  - ARTHRITIS [None]
  - BACK PAIN [None]
  - BREAST CANCER [None]
  - DEPRESSION [None]
  - GAIT DISTURBANCE [None]
  - GASTRIC HAEMORRHAGE [None]
  - INCREASED APPETITE [None]
  - INSOMNIA [None]
  - MALIGNANT TUMOUR EXCISION [None]
  - MEMORY IMPAIRMENT [None]
  - MUSCULOSKELETAL STIFFNESS [None]
  - NODULE [None]
  - OEDEMA PERIPHERAL [None]
  - UNEVALUABLE EVENT [None]
  - UTERINE DILATION AND CURETTAGE [None]
  - WEIGHT INCREASED [None]
